FAERS Safety Report 8792424 (Version 1)
Quarter: 2012Q4

REPORT INFORMATION
  Report Type: 
  Country: US (occurrence: US)
  Receive Date: 20120918
  Receipt Date: 20120918
  Transmission Date: 20130627
  Serious: Yes (Death)
  Sender: FDA-Public Use
  Company Number: US-ROCHE-1129192

PATIENT
  Sex: Female

DRUGS (5)
  1. AVASTIN [Suspect]
     Indication: UTERINE CANCER
     Route: 065
  2. TAXOL [Concomitant]
  3. CARBOPLATIN [Concomitant]
  4. NEUPOGEN [Concomitant]
  5. ARANESP [Concomitant]

REACTIONS (1)
  - Death [Fatal]
